FAERS Safety Report 6828914-3 (Version None)
Quarter: 2010Q3

REPORT INFORMATION
  Report Type: 
  Country: None (occurrence: None)
  Receive Date: 20100709
  Receipt Date: 20070222
  Transmission Date: 20110219
  Serious: No
  Sender: FDA-Public Use
  Company Number: US-PFIZER INC-2007014208

PATIENT
  Sex: Female

DRUGS (1)
  1. CHANTIX [Suspect]
     Indication: SMOKING CESSATION THERAPY
     Dates: start: 20070205

REACTIONS (11)
  - ABDOMINAL DISTENSION [None]
  - ABNORMAL DREAMS [None]
  - BLOOD CHOLESTEROL [None]
  - CONSTIPATION [None]
  - DIZZINESS [None]
  - FLATULENCE [None]
  - INCREASED APPETITE [None]
  - INSOMNIA [None]
  - NAUSEA [None]
  - WEIGHT INCREASED [None]
  - WITHDRAWAL SYNDROME [None]
